FAERS Safety Report 4301392-4 (Version None)
Quarter: 2004Q1

REPORT INFORMATION
  Report Type: 
  Country: None (occurrence: None)
  Receive Date: 20040223
  Receipt Date: 20031017
  Transmission Date: 20041129
  Serious: No
  Sender: FDA-Public Use
  Company Number: US-GLAXOSMITHKLINE-A0430587A

PATIENT
  Sex: Female

DRUGS (2)
  1. NAVELBINE [Suspect]
     Indication: BREAST CANCER
     Dosage: 25MGM2 SINGLE DOSE
     Route: 042
     Dates: start: 20030901
  2. NONE [Concomitant]

REACTIONS (1)
  - BONE PAIN [None]
